FAERS Safety Report 7344631-8 (Version None)
Quarter: 2011Q1

REPORT INFORMATION
  Report Type: 
  Country: None (occurrence: None)
  Receive Date: 20110308
  Receipt Date: 20110308
  Transmission Date: 20110831
  Serious: Yes (Life-Threatening, Hospitalization, Other)
  Sender: FDA-Public Use
  Company Number: None

PATIENT
  Age: 12 Year
  Sex: Male
  Weight: 38.5557 kg

DRUGS (1)
  1. RISPERIDONE [Suspect]
     Indication: AFFECTIVE DISORDER

REACTIONS (5)
  - OVERDOSE [None]
  - SUICIDAL IDEATION [None]
  - CONVULSION [None]
  - AGGRESSION [None]
  - DRUG DISPENSING ERROR [None]
